FAERS Safety Report 8346543-X (Version None)
Quarter: 2012Q2

REPORT INFORMATION
  Report Type: 
  Country: None (occurrence: None)
  Receive Date: 20120509
  Receipt Date: 20120502
  Transmission Date: 20120825
  Serious: No
  Sender: FDA-Public Use
  Company Number: US-PFIZER INC-2012108953

PATIENT
  Sex: Female
  Weight: 125 kg

DRUGS (2)
  1. LISINOPRIL [Suspect]
     Dosage: UNK
  2. QUINAPRIL HCL [Suspect]
     Dosage: UNK

REACTIONS (2)
  - RENAL DISORDER [None]
  - COUGH [None]
